FAERS Safety Report 25596374 (Version 2)
Quarter: 2025Q3

REPORT INFORMATION
  Report Type: Spontaneous
  Country: US (occurrence: US)
  Receive Date: 20250723
  Receipt Date: 20250820
  Transmission Date: 20251021
  Serious: No
  Sender: MYLAN
  Company Number: US-MYLANLABS-2025M1059706

PATIENT
  Age: 76 Year
  Sex: Female
  Weight: 72.57 kg

DRUGS (9)
  1. SCOPOLAMINE TRANSDERMAL SYSTEM [Suspect]
     Active Substance: SCOPOLAMINE
     Indication: Vertigo
     Dosage: 1 MILLIGRAM, Q3D (1 PATCH PER 3 DAYS)
     Dates: start: 202502
  2. SCOPOLAMINE TRANSDERMAL SYSTEM [Suspect]
     Active Substance: SCOPOLAMINE
     Indication: Motion sickness
  3. LEVOTHYROXINE [Concomitant]
     Active Substance: LEVOTHYROXINE
     Dosage: 50 MICROGRAM, QD (ONCE DAILY)
  4. PHENYLEPHRINE [Concomitant]
     Active Substance: PHENYLEPHRINE
  5. CHLORTHALIDONE [Concomitant]
     Active Substance: CHLORTHALIDONE
     Dosage: 25 MILLIGRAM, QD (ONCE DAILY)
  6. OMEPRAZOLE [Concomitant]
     Active Substance: OMEPRAZOLE
     Dosage: 20 MILLIGRAM, QD (ONCE DAILY)
  7. DIPHENHYDRAMINE [Concomitant]
     Active Substance: DIPHENHYDRAMINE
  8. IBUPROFEN [Concomitant]
     Active Substance: IBUPROFEN
  9. PSYLLIUM HUSK [Concomitant]
     Active Substance: PSYLLIUM HUSK
     Dosage: 3 DOSAGE FORM, BID (3 CAPSULES TWICE DAILY)

REACTIONS (2)
  - Off label use [Unknown]
  - Product adhesion issue [Unknown]

NARRATIVE: CASE EVENT DATE: 20250701
